FAERS Safety Report 7330835-7 (Version None)
Quarter: 2011Q1

REPORT INFORMATION
  Report Type: 
  Country: None (occurrence: None)
  Receive Date: 20110304
  Receipt Date: 20110228
  Transmission Date: 20110831
  Serious: Yes (Other)
  Sender: FDA-Public Use
  Company Number: US-PFIZER INC-2003012560

PATIENT
  Sex: Female
  Weight: 90.72 kg

DRUGS (4)
  1. PAXIL [Suspect]
     Dosage: 20 MG, UNK
  2. LEVOTHYROXINE SODIUM [Concomitant]
  3. ZOLOFT [Suspect]
     Indication: PANIC DISORDER
     Dosage: 25 MG, UNK
     Route: 048
     Dates: start: 20030301
  4. ZOLOFT [Suspect]
     Indication: DEPRESSION
     Dosage: 50 MG, UNK
     Route: 048

REACTIONS (3)
  - SUICIDAL IDEATION [None]
  - WITHDRAWAL SYNDROME [None]
  - DIZZINESS [None]
